FAERS Safety Report 10169719 (Version 1)
Quarter: 2014Q2

REPORT INFORMATION
  Report Type: Spontaneous
  Country: US (occurrence: US)
  Receive Date: 20140513
  Receipt Date: 20140513
  Transmission Date: 20141212
  Serious: Yes (Hospitalization)
  Sender: FDA-Public Use
  Company Number: US-B.I. PHARMACEUTICALS,INC./RIDGEFIELD-2014-BI-20821BP

PATIENT
  Age: 73 Year
  Sex: Female
  Weight: 56 kg

DRUGS (9)
  1. SPIRIVA [Suspect]
     Indication: DYSPNOEA
     Dosage: 18 MCG
     Route: 055
     Dates: start: 201308
  2. SPIRIVA [Suspect]
     Dosage: 18 MCG
     Route: 048
     Dates: start: 20140509, end: 20140509
  3. ASMINEX [Concomitant]
     Indication: DYSPNOEA
     Route: 055
  4. FAMOTIDINER [Concomitant]
     Indication: GASTROOESOPHAGEAL REFLUX DISEASE
     Route: 048
  5. LETROZOLE [Concomitant]
     Indication: BREAST CANCER
     Dosage: 25 MG
     Route: 065
  6. METOPROLOL SUCC. ER [Concomitant]
     Indication: HYPERTENSION
     Dosage: 25 MG
     Route: 048
  7. AMLODIPINE BENAZEPRIL [Concomitant]
     Indication: HYPERTENSION
     Dosage: DOSE PER APPLICATION AND DAILY DOSE: 5/20 MG
     Route: 048
  8. VITMAMIN D 3 [Concomitant]
     Indication: BONE DISORDER
     Dosage: (CAPSULE) STRENGTH: 2000 IU; DAILY DOSE: 2000 IU
     Route: 048
  9. VITMAMIN D 3 [Concomitant]
     Indication: CALCINOSIS

REACTIONS (3)
  - Cerebrovascular accident [Not Recovered/Not Resolved]
  - Bradyphrenia [Not Recovered/Not Resolved]
  - Incorrect route of drug administration [Recovered/Resolved]
